FAERS Safety Report 7258010-5 (Version None)
Quarter: 2011Q1

REPORT INFORMATION
  Report Type: 
  Country: None (occurrence: None)
  Receive Date: 20110129
  Receipt Date: 20100609
  Transmission Date: 20110831
  Serious: No
  Sender: FDA-Public Use
  Company Number: US-ABBOTT-10P-163-0651613-00

PATIENT
  Sex: Female

DRUGS (6)
  1. MULTI-VITAMIN [Concomitant]
     Indication: VITAMIN SUPPLEMENTATION
  2. HUMIRA [Suspect]
     Dates: start: 20100506
  3. CALCIUM [Concomitant]
     Indication: MINERAL SUPPLEMENTATION
  4. SPIRONOLACTONE [Concomitant]
     Indication: PRODUCT USED FOR UNKNOWN INDICATION
  5. HUMIRA [Suspect]
     Indication: CROHN'S DISEASE
     Dates: start: 20100408, end: 20100408
  6. HUMIRA [Suspect]
     Dates: start: 20100422, end: 20100422

REACTIONS (4)
  - INJECTION SITE REACTION [None]
  - RASH PAPULAR [None]
  - RASH PRURITIC [None]
  - RASH ERYTHEMATOUS [None]
